FAERS Safety Report 4765232-1 (Version None)
Quarter: 2005Q3

REPORT INFORMATION
  Report Type: 
  Country: None (occurrence: None)
  Receive Date: 20050906
  Receipt Date: 20050817
  Transmission Date: 20060218
  Serious: Yes (Death, Hospitalization)
  Sender: FDA-Public Use
  Company Number: ACO_0175_2005

PATIENT
  Age: 83 Year
  Sex: Female

DRUGS (5)
  1. TERNELIN [Suspect]
     Indication: BACK PAIN
     Dosage: 3 MG QDAY PO
     Route: 048
     Dates: start: 20050426, end: 20050426
  2. SOLANTAL [Suspect]
     Indication: BACK PAIN
     Dosage: 150 MG QDAY PO
     Route: 048
     Dates: start: 20050426, end: 20050426
  3. MARZULENE [Concomitant]
  4. DIOVAN [Concomitant]
  5. CALSLOT [Concomitant]

REACTIONS (7)
  - BLOOD PRESSURE DECREASED [None]
  - CARDIO-RESPIRATORY ARREST [None]
  - DRUG INTERACTION [None]
  - FEELING ABNORMAL [None]
  - HYPOTHERMIA [None]
  - LOSS OF CONSCIOUSNESS [None]
  - MYOCARDIAL INFARCTION [None]
